FAERS Safety Report 4291423-2 (Version None)
Quarter: 2004Q1

REPORT INFORMATION
  Report Type: 
  Country: None (occurrence: None)
  Receive Date: 20040211
  Receipt Date: 20040113
  Transmission Date: 20041129
  Serious: Yes (Other)
  Sender: FDA-Public Use
  Company Number: PHBS2004JP00800

PATIENT
  Age: 48 Year
  Sex: Male
  Weight: 70 kg

DRUGS (14)
  1. DIOVAN [Suspect]
     Indication: HYPERTENSION
     Dosage: 80 MG/DAY
     Route: 048
     Dates: start: 20031031, end: 20040107
  2. DIOVAN [Suspect]
     Dosage: 160 MG/DAY
     Route: 048
     Dates: start: 20040108, end: 20040112
  3. DIOVAN [Suspect]
     Dosage: 40 MG/DAY
     Route: 048
     Dates: start: 20040113, end: 20040119
  4. DIOVAN [Suspect]
     Dosage: 80 MG/DAY
     Route: 048
     Dates: start: 20040120
  5. ADALAT [Concomitant]
     Indication: HYPERTENSION
     Dosage: 40 MG/DAY
     Route: 048
     Dates: start: 20040108, end: 20040113
  6. RITALIN [Suspect]
     Dosage: 10 MG/DAY
     Route: 048
     Dates: start: 20031211
  7. TOLEDOMIN [Suspect]
     Dosage: 25 MG/DAY
     Route: 048
     Dates: start: 20031211
  8. AMOXAN [Suspect]
     Dosage: 25 MG/DAY
     Route: 048
     Dates: start: 20031211
  9. LOFEPRAMINE HYDROCHLORIDE [Suspect]
     Dosage: 25 MG/DAY
     Route: 048
     Dates: start: 20031211
  10. SERENAL [Suspect]
     Dosage: 10 MG/DAY
     Route: 048
     Dates: start: 20031211
  11. ROHYPNOL [Suspect]
     Dosage: 1 MG/DAY
     Route: 048
     Dates: start: 20031211
  12. ASPIRIN [Concomitant]
     Dosage: 100 MG, UNK
     Route: 048
     Dates: start: 20031204
  13. HERBESSER ^TANABE^ [Concomitant]
     Indication: TACHYCARDIA
     Dosage: 200 MG, UNK
     Route: 048
     Dates: start: 20031031, end: 20031106
  14. NITRODERM [Concomitant]
     Indication: ANGINA PECTORIS
     Dosage: 50 MG/DAT
     Route: 062
     Dates: start: 20031204

REACTIONS (4)
  - DEPRESSION [None]
  - PALPITATIONS [None]
  - PSYCHOTIC DISORDER [None]
  - TACHYCARDIA [None]
